FAERS Safety Report 9927436 (Version 2)
Quarter: 2015Q4

REPORT INFORMATION
  Report Type: Report from Study
  Country: US (occurrence: US)
  Receive Date: 20140227
  Receipt Date: 20151116
  Transmission Date: 20160305
  Serious: Yes (Other)
  Sender: FDA-Public Use
  Company Number: US-ROCHE-1337590

PATIENT
  Sex: Male

DRUGS (11)
  1. LUCENTIS [Suspect]
     Active Substance: RANIBIZUMAB
     Indication: INTRAOCULAR LENS IMPLANT
  2. LUCENTIS [Suspect]
     Active Substance: RANIBIZUMAB
     Indication: DIABETIC RETINOPATHY
  3. INSULIN [Concomitant]
     Active Substance: INSULIN NOS
     Indication: DIABETES MELLITUS
  4. OFLOXACIN. [Concomitant]
     Active Substance: OFLOXACIN
     Route: 047
  5. TIMOLOL. [Concomitant]
     Active Substance: TIMOLOL
  6. LUCENTIS [Suspect]
     Active Substance: RANIBIZUMAB
     Indication: RETINAL DETACHMENT
     Route: 050
  7. LUCENTIS [Suspect]
     Active Substance: RANIBIZUMAB
     Indication: DIABETIC RETINAL OEDEMA
     Route: 050
     Dates: start: 20110601
  8. PREDNISOLONE. [Concomitant]
     Active Substance: PREDNISOLONE
     Dosage: X 3WEEKS, TAPER DOWN TO QDX2WEEKS
     Route: 047
  9. BROMDAY [Concomitant]
     Active Substance: BROMFENAC SODIUM
     Route: 047
  10. BETADINE [Concomitant]
     Active Substance: POVIDONE-IODINE
     Route: 061
  11. KETOROLAC [Concomitant]
     Active Substance: KETOROLAC\KETOROLAC TROMETHAMINE
     Route: 047

REACTIONS (9)
  - Blindness [Unknown]
  - Retinal disorder [Unknown]
  - Open angle glaucoma [Unknown]
  - Eyelid ptosis [Unknown]
  - Visual acuity reduced [Unknown]
  - Vitreous haemorrhage [Unknown]
  - Vitreous floaters [Unknown]
  - Intraocular pressure increased [Unknown]
  - Eyelid oedema [Unknown]
